FAERS Safety Report 6947490-8 (Version None)
Quarter: 2010Q3

REPORT INFORMATION
  Report Type: 
  Country: None (occurrence: None)
  Receive Date: 20100827
  Receipt Date: 20090914
  Transmission Date: 20110219
  Serious: No
  Sender: FDA-Public Use
  Company Number: US-ABBOTT-09P-163-0597762-00

PATIENT
  Sex: Female
  Weight: 61.744 kg

DRUGS (5)
  1. NIASPAN [Suspect]
     Indication: BLOOD CHOLESTEROL INCREASED
     Dates: start: 20090828
  2. NEURONTIN [Concomitant]
     Indication: NEUROPATHY PERIPHERAL
  3. NEURONTIN [Concomitant]
     Indication: TUMOUR EXCISION
  4. COZAAR [Concomitant]
     Indication: HYPERTENSION
  5. ACTONEL [Concomitant]
     Indication: OSTEOPENIA

REACTIONS (3)
  - ERYTHEMA [None]
  - PRURITUS [None]
  - THROAT TIGHTNESS [None]
